FAERS Safety Report 24692102 (Version 5)
Quarter: 2025Q1

REPORT INFORMATION
  Report Type: Report from Study
  Country: CO (occurrence: CO)
  Receive Date: 20241203
  Receipt Date: 20250325
  Transmission Date: 20250409
  Serious: Yes (Hospitalization, Other)
  Sender: NOVARTIS
  Company Number: CO-002147023-NVSC2024CO086521

PATIENT
  Sex: Female
  Weight: 74 kg

DRUGS (2)
  1. COSENTYX [Suspect]
     Active Substance: SECUKINUMAB
     Indication: Psoriasis
     Dosage: 300 MG, QMO (STARTED 3 OR 4 YEARS AGO)
     Route: 058
     Dates: start: 2013
  2. COSENTYX [Suspect]
     Active Substance: SECUKINUMAB
     Dosage: 300 MG, QMO
     Route: 058
     Dates: start: 20200516, end: 20241021

REACTIONS (23)
  - Pneumonia [Recovered/Resolved]
  - Psoriasis [Unknown]
  - Sleep apnoea syndrome [Unknown]
  - Acne [Unknown]
  - Pruritus [Unknown]
  - Hypersensitivity [Unknown]
  - Ocular hyperaemia [Unknown]
  - Rash [Unknown]
  - Eyelids pruritus [Unknown]
  - Body height decreased [Unknown]
  - Fungal foot infection [Unknown]
  - Skin exfoliation [Unknown]
  - Weight increased [Unknown]
  - Illness [Unknown]
  - Arthralgia [Not Recovered/Not Resolved]
  - Memory impairment [Unknown]
  - Seasonal allergy [Unknown]
  - Eye disorder [Recovering/Resolving]
  - Pain in extremity [Unknown]
  - Dermatitis [Not Recovered/Not Resolved]
  - Malaise [Unknown]
  - Respiratory disorder [Not Recovered/Not Resolved]
  - Gait disturbance [Unknown]

NARRATIVE: CASE EVENT DATE: 20240101
